FAERS Safety Report 19764966 (Version 3)
Quarter: 2021Q4

REPORT INFORMATION
  Report Type: Report from Study
  Country: US (occurrence: US)
  Receive Date: 20210831
  Receipt Date: 20211216
  Transmission Date: 20220304
  Serious: No
  Sender: FDA-Public Use
  Company Number: US-NOVARTISTESTPH-NVSC2021US196437

PATIENT
  Age: 80 Year
  Sex: Male

DRUGS (1)
  1. ENTRESTO [Suspect]
     Active Substance: SACUBITRIL\VALSARTAN
     Indication: Product used for unknown indication
     Dosage: 0.5 DF, BID (HALF TABLET IN MORNING AND HALF TABLET IN EVENING)
     Route: 065

REACTIONS (3)
  - Asthenia [Unknown]
  - Wrong technique in product usage process [Unknown]
  - Dizziness [Unknown]
